FAERS Safety Report 5022087-8 (Version None)
Quarter: 2006Q2

REPORT INFORMATION
  Report Type: 
  Country: None (occurrence: None)
  Receive Date: 20060609
  Receipt Date: 20060601
  Transmission Date: 20061013
  Serious: Yes (Hospitalization)
  Sender: FDA-Public Use
  Company Number: US-JNJFOC-20060600544

PATIENT
  Age: 63 Year
  Sex: Female
  Weight: 60.78 kg

DRUGS (14)
  1. REMICADE [Suspect]
     Route: 042
  2. REMICADE [Suspect]
     Indication: RHEUMATOID ARTHRITIS
     Route: 042
  3. ACTONEL [Concomitant]
     Indication: OSTEOPOROSIS
  4. CELEBREX [Concomitant]
     Indication: RHEUMATOID ARTHRITIS
  5. FOLIC ACID [Concomitant]
  6. LIPITOR [Concomitant]
     Indication: BLOOD CHOLESTEROL
  7. METHOTREXATE [Concomitant]
     Indication: RHEUMATOID ARTHRITIS
  8. NORVASC [Concomitant]
     Indication: RAYNAUD'S PHENOMENON
  9. OXYCONTIN [Concomitant]
  10. PREMARIN [Concomitant]
  11. SONATA [Concomitant]
  12. TRAZODONE HCL [Concomitant]
     Dosage: AT BEDTIME
  13. ZELNORM [Concomitant]
  14. PLAQUENIL [Concomitant]

REACTIONS (1)
  - HYPOAESTHESIA [None]
